FAERS Safety Report 4386027-7 (Version None)
Quarter: 2004Q2

REPORT INFORMATION
  Report Type: 
  Country: None (occurrence: None)
  Receive Date: 20040628
  Receipt Date: 20030521
  Transmission Date: 20050107
  Serious: Yes (Hospitalization, Other)
  Sender: FDA-Public Use
  Company Number: US-AMGEN-US038532

PATIENT
  Sex: Male
  Weight: 70.8 kg

DRUGS (17)
  1. ENBREL [Suspect]
     Indication: RHEUMATOID ARTHRITIS
     Route: 058
     Dates: start: 20021219, end: 20030504
  2. METHOTREXATE [Suspect]
     Route: 048
     Dates: start: 20020726, end: 20030504
  3. PREDNISONE [Suspect]
     Route: 048
     Dates: start: 20021126
  4. LODINE [Concomitant]
     Route: 048
  5. POTASSIUM [Concomitant]
     Route: 048
  6. TENEX [Concomitant]
  7. NEXIUM [Concomitant]
     Route: 048
  8. QUININE [Concomitant]
     Route: 048
  9. ZOCOR [Concomitant]
     Route: 048
  10. ASPIRIN [Concomitant]
  11. ZANTAC [Concomitant]
     Route: 048
  12. FOLIC ACID [Concomitant]
  13. FOSAMAX [Concomitant]
     Route: 048
  14. LASIX [Concomitant]
     Route: 048
  15. GLUCOPHAGE [Concomitant]
     Route: 048
  16. GUANFACINE HYDROCHLORIDE [Concomitant]
     Route: 048
  17. ZESTORETIC [Concomitant]
     Route: 048

REACTIONS (4)
  - DIVERTICULUM [None]
  - ENTEROVESICAL FISTULA [None]
  - INFECTION [None]
  - PNEUMATURIA [None]
